FAERS Safety Report 4894844-X (Version None)
Quarter: 2006Q1

REPORT INFORMATION
  Report Type: 
  Country: None (occurrence: None)
  Receive Date: 20060124
  Receipt Date: 20060109
  Transmission Date: 20060701
  Serious: Yes (Other)
  Sender: FDA-Public Use
  Company Number: 13197

PATIENT
  Age: 51 Year
  Sex: Male

DRUGS (1)
  1. AMIKACIN [Suspect]
     Indication: ENDOPHTHALMITIS

REACTIONS (1)
  - RETINAL INFARCTION [None]
